FAERS Safety Report 7398358-7 (Version None)
Quarter: 2011Q2

REPORT INFORMATION
  Report Type: 
  Country: None (occurrence: None)
  Receive Date: 20110406
  Receipt Date: 20110401
  Transmission Date: 20111010
  Serious: Yes (Death)
  Sender: FDA-Public Use
  Company Number: NZ-MERCK-1104USA00064

PATIENT
  Age: 40 Year
  Sex: Male

DRUGS (1)
  1. CANCIDAS [Suspect]
     Route: 065

REACTIONS (1)
  - DEATH [None]
